FAERS Safety Report 9105257 (Version 3)
Quarter: 2013Q4

REPORT INFORMATION
  Report Type: Spontaneous
  Country: FR (occurrence: FR)
  Receive Date: 20130220
  Receipt Date: 20131111
  Transmission Date: 20140711
  Serious: Yes (Death, Hospitalization)
  Sender: FDA-Public Use
  Company Number: FR-JNJFOC-20130208601

PATIENT
  Age: 67 Year
  Sex: Female

DRUGS (10)
  1. DOXORUBICIN HYDROCHLORIDE (CAELYX) [Suspect]
     Indication: RECTAL CANCER
     Dosage: 3 COURSES
     Route: 042
     Dates: start: 20100609, end: 201012
  2. DOXORUBICIN HYDROCHLORIDE (CAELYX) [Suspect]
     Indication: RECTAL CANCER
     Dosage: 3 COURSES
     Route: 042
     Dates: start: 201105
  3. DOXORUBICIN HYDROCHLORIDE (CAELYX) [Suspect]
     Indication: COLON CANCER
     Dosage: 3 COURSES
     Route: 042
     Dates: start: 201105
  4. DOXORUBICIN HYDROCHLORIDE (CAELYX) [Suspect]
     Indication: COLON CANCER
     Dosage: 3 COURSES
     Route: 042
     Dates: start: 20100609, end: 201012
  5. AVASTIN [Suspect]
     Indication: RECTAL CANCER
     Dosage: 3 COURSES
     Route: 042
     Dates: start: 201012
  6. AVASTIN [Suspect]
     Indication: RECTAL CANCER
     Dosage: 3 COURSES
     Route: 042
     Dates: start: 20100609
  7. AVASTIN [Suspect]
     Indication: RECTAL CANCER
     Dosage: 3 COURSES
     Route: 042
     Dates: start: 201105
  8. AVASTIN [Suspect]
     Indication: COLON CANCER
     Dosage: 3 COURSES
     Route: 042
     Dates: start: 20100609
  9. AVASTIN [Suspect]
     Indication: COLON CANCER
     Dosage: 3 COURSES
     Route: 042
     Dates: start: 201012
  10. AVASTIN [Suspect]
     Indication: COLON CANCER
     Dosage: 3 COURSES
     Route: 042
     Dates: start: 201105

REACTIONS (5)
  - Intestinal perforation [Fatal]
  - Septic shock [Fatal]
  - Neutropenia [Unknown]
  - Thrombocytopenia [Unknown]
  - Off label use [Unknown]
